FAERS Safety Report 5639355-9 (Version None)
Quarter: 2008Q1

REPORT INFORMATION
  Report Type: 
  Country: None (occurrence: None)
  Receive Date: 20080131
  Receipt Date: 20071218
  Transmission Date: 20080703
  Serious: Yes (Hospitalization)
  Sender: FDA-Public Use
  Company Number: 163-21880-07111370

PATIENT
  Age: 80 Year
  Sex: Female

DRUGS (2)
  1. REVLIMID [Suspect]
     Indication: MULTIPLE MYELOMA
     Dosage: 15 MG, DAILY, ORAL ; 25 MG, DAILY, ORAL
     Route: 048
     Dates: start: 20071008, end: 20071101
  2. REVLIMID [Suspect]
     Indication: MULTIPLE MYELOMA
     Dosage: 15 MG, DAILY, ORAL ; 25 MG, DAILY, ORAL
     Route: 048
     Dates: start: 20071107, end: 20071124

REACTIONS (2)
  - PYREXIA [None]
  - SEPSIS [None]
